FAERS Safety Report 17410336 (Version 1)
Quarter: 2020Q1

REPORT INFORMATION
  Report Type: Spontaneous
  Country: US (occurrence: US)
  Receive Date: 20200212
  Receipt Date: 20200212
  Transmission Date: 20200409
  Serious: Yes (Hospitalization)
  Sender: FDA-Public Use
  Company Number: US-SA-2020SA033144

PATIENT
  Age: 19 Year
  Sex: Female

DRUGS (1)
  1. LANTUS [Suspect]
     Active Substance: INSULIN GLARGINE
     Dosage: 6 LANTUS INSULIN PENS, CORRELATING TO APPROXIMATELY 1800 UNITS OF LANTUS INSULIN

REACTIONS (6)
  - Tachycardia [Unknown]
  - Intentional overdose [Unknown]
  - Abdominal pain [Unknown]
  - Palpitations [Unknown]
  - Hypoglycaemia [Unknown]
  - Fatigue [Unknown]
